FAERS Safety Report 16303976 (Version 1)
Quarter: 2019Q2

REPORT INFORMATION
  Report Type: Spontaneous
  Country: US (occurrence: US)
  Receive Date: 20190513
  Receipt Date: 20190513
  Transmission Date: 20190711
  Serious: No
  Sender: FDA-Public Use
  Company Number: US-MYLANLABS-2019M1040125

PATIENT
  Sex: Female
  Weight: 63.5 kg

DRUGS (1)
  1. ACEBUTOLOL [Suspect]
     Active Substance: ACEBUTOLOL
     Indication: SYNCOPE
     Dosage: 400 MILLIGRAM, QD
     Route: 048

REACTIONS (2)
  - Constipation [Recovered/Resolved]
  - Abdominal distension [Recovered/Resolved]
